FAERS Safety Report 7265511-2 (Version None)
Quarter: 2011Q1

REPORT INFORMATION
  Report Type: 
  Country: None (occurrence: None)
  Receive Date: 20110131
  Receipt Date: 20110120
  Transmission Date: 20110831
  Serious: Yes (Hospitalization)
  Sender: FDA-Public Use
  Company Number: JP-ROCHE-755596

PATIENT
  Age: 35 Year
  Sex: Male

DRUGS (8)
  1. LAMIVUDINE [Suspect]
     Indication: HIV INFECTION
     Route: 048
     Dates: start: 20091211
  2. VALGANCICLOVIR HCL [Suspect]
     Indication: CYTOMEGALOVIRUS INFECTION
     Dosage: INITIAL THERAPY.
     Route: 048
     Dates: start: 20100106, end: 20100127
  3. ATAZANAVIR [Suspect]
     Indication: HIV INFECTION
     Route: 048
     Dates: start: 20091022, end: 20091202
  4. RITONAVIR [Suspect]
     Indication: HIV INFECTION
     Route: 048
     Dates: start: 20091022
  5. RIFABUTIN [Suspect]
     Indication: MYCOBACTERIUM AVIUM COMPLEX INFECTION
     Route: 048
     Dates: start: 20090120, end: 20091211
  6. DARUNAVIR ETHANOLATE [Suspect]
     Indication: HIV INFECTION
     Route: 048
     Dates: start: 20091203
  7. VALGANCICLOVIR HCL [Suspect]
     Dosage: MAINTENANCE THERAPY.
     Route: 048
     Dates: start: 20100216
  8. EMTRICITABINE/TENOFOVIR DISOPROXIL FUMARATE [Suspect]
     Indication: HIV INFECTION
     Route: 048
     Dates: start: 20091022, end: 20091202

REACTIONS (4)
  - HYPERURICAEMIA [None]
  - MYCOBACTERIUM AVIUM COMPLEX INFECTION [None]
  - CYTOMEGALOVIRUS CHORIORETINITIS [None]
  - RENAL IMPAIRMENT [None]
